FAERS Safety Report 7795963-0 (Version None)
Quarter: 2011Q4

REPORT INFORMATION
  Report Type: 
  Country: None (occurrence: None)
  Receive Date: 20111004
  Receipt Date: 20110922
  Transmission Date: 20120403
  Serious: Yes (Hospitalization, Disabling)
  Sender: FDA-Public Use
  Company Number: US-BAYER-2011-009638

PATIENT
  Age: 40 Year
  Sex: Female
  Weight: 73.016 kg

DRUGS (9)
  1. ADIPEX-P [Concomitant]
     Indication: WEIGHT DECREASED
     Dosage: 37.5 MG, DAILY
     Dates: start: 20090123
  2. NABUMETONE [Concomitant]
     Indication: ANALGESIC THERAPY
     Dosage: 750 MG, DAILY
     Dates: start: 20090123, end: 20090206
  3. PROPOXYPHENE HYDROCHLORIDE [Concomitant]
  4. METHYLPREDNISOLONE [Concomitant]
     Indication: INFLAMMATION
     Dosage: 4 MG, DAILY
     Dates: start: 20090123, end: 20090206
  5. CEPHALEXIN [Concomitant]
     Indication: URINARY TRACT INFECTION
     Dosage: 500 MG, DAILY
     Dates: start: 20090123, end: 20090206
  6. AMBIEN [Concomitant]
  7. PHENAZOPYRIDINE HCL TAB [Concomitant]
     Indication: URINARY TRACT INFECTION
     Dosage: 200 MG, DAILY
     Dates: start: 20090123, end: 20090206
  8. YAZ [Suspect]
     Indication: CONTRACEPTION
     Dosage: UNK
     Dates: start: 20080101, end: 20090101
  9. ALPRAZOLAM [Concomitant]

REACTIONS (8)
  - EMOTIONAL DISTRESS [None]
  - ANXIETY [None]
  - CEREBROVASCULAR ACCIDENT [None]
  - FEAR [None]
  - MENTAL DISORDER [None]
  - EMBOLIC STROKE [None]
  - PAIN [None]
  - CEREBRAL INFARCTION [None]
